FAERS Safety Report 4330485-0 (Version None)
Quarter: 2004Q1

REPORT INFORMATION
  Report Type: 
  Country: None (occurrence: None)
  Receive Date: 20040329
  Receipt Date: 20040316
  Transmission Date: 20041129
  Serious: Yes (Death)
  Sender: FDA-Public Use
  Company Number: 2004JP000187

PATIENT
  Age: 37 Year
  Sex: Male

DRUGS (5)
  1. PROGRAF [Suspect]
     Indication: RENAL TRANSPLANT
     Dosage: 4.50 MG, BID, ORAL
     Route: 048
     Dates: start: 20010226, end: 20020522
  2. PROGRAF [Suspect]
     Indication: RENAL TRANSPLANT
     Dosage: 4.50 MG, BID, ORAL
     Route: 048
     Dates: start: 20020523, end: 20020618
  3. MYCOPHENOLATE MOFETIL        (MYCOPHENOLATE MOFETIL) [Suspect]
     Dosage: ORAL
     Route: 048
     Dates: start: 20011113, end: 20020610
  4. PREDNISOLONE [Suspect]
     Dosage: 10.00 MG, ORAL
     Route: 048
     Dates: start: 20010226, end: 20010327
  5. PREDNISOLONE [Suspect]
     Dosage: 10.00 MG, ORAL
     Route: 048
     Dates: start: 20010328, end: 20020101

REACTIONS (18)
  - ANURIA [None]
  - BACK PAIN [None]
  - DISCOMFORT [None]
  - HAEMODIALYSIS [None]
  - HYPOAESTHESIA [None]
  - ILEUS [None]
  - KIDNEY TRANSPLANT REJECTION [None]
  - LUNG NEOPLASM [None]
  - LYMPHADENOPATHY [None]
  - MALAISE [None]
  - METASTASIS [None]
  - NEPHROPATHY [None]
  - PAIN [None]
  - PERITONITIS [None]
  - POST PROCEDURAL COMPLICATION [None]
  - PYREXIA [None]
  - TENDERNESS [None]
  - TRANSITIONAL CELL CARCINOMA [None]
